FAERS Safety Report 22075245 (Version 1)
Quarter: 2023Q1

REPORT INFORMATION
  Report Type: Spontaneous
  Country: RO (occurrence: RO)
  Receive Date: 20230308
  Receipt Date: 20230308
  Transmission Date: 20230418
  Serious: Yes (Death, Hospitalization, Other)
  Sender: FDA-Public Use
  Company Number: RO-ABBVIE-4332220

PATIENT
  Age: 66 Year
  Sex: Female

DRUGS (11)
  1. VENETOCLAX [Suspect]
     Active Substance: VENETOCLAX
     Indication: Product used for unknown indication
     Route: 048
     Dates: start: 20220826
  2. CIPROFLOXACIN [Concomitant]
     Active Substance: CIPROFLOXACIN
     Indication: Product used for unknown indication
     Dates: start: 20220904
  3. BISEPTOL [Concomitant]
     Active Substance: SULFAMETHOXAZOLE\TRIMETHOPRIM
     Indication: Product used for unknown indication
     Dosage: 480 MG, 3 X 2 TAB
     Dates: start: 20220825
  4. IMIPENEM [Concomitant]
     Active Substance: IMIPENEM
     Indication: Product used for unknown indication
     Dates: start: 20220904
  5. CILASTATIN [Concomitant]
     Active Substance: CILASTATIN
     Indication: Product used for unknown indication
     Dosage: TIME INTERVAL: 0.33333333 DAYS
     Dates: start: 20220904
  6. Baneocin [Concomitant]
     Indication: Product used for unknown indication
     Dates: start: 20220825
  7. CEFTRIAXONE [Concomitant]
     Active Substance: CEFTRIAXONE
     Indication: Product used for unknown indication
     Dosage: 2 X 2 G
     Dates: start: 20220825
  8. NEOMYCIN\NYSTATIN\TRIAMCINOLONE [Concomitant]
     Active Substance: NEOMYCIN\NYSTATIN\TRIAMCINOLONE
     Indication: Product used for unknown indication
     Dates: start: 20220825
  9. AZACITIDINE [Concomitant]
     Active Substance: AZACITIDINE
     Indication: Product used for unknown indication
     Dosage: 156 MG
     Dates: start: 20220826, end: 20220901
  10. FLUCONAZOLE [Concomitant]
     Active Substance: FLUCONAZOLE
     Indication: Product used for unknown indication
     Dosage: 2 X 200 MG
     Dates: start: 20220925
  11. SORBALGON [Concomitant]
     Indication: Product used for unknown indication
     Dates: start: 20220825

REACTIONS (22)
  - Cardio-respiratory arrest [Fatal]
  - Faeces discoloured [Unknown]
  - Anaemia [Unknown]
  - Haemoglobin decreased [Unknown]
  - Thrombocytopenia [Unknown]
  - Blood sodium decreased [Unknown]
  - Pyrexia [Unknown]
  - Renal failure [Unknown]
  - Electrolyte imbalance [Recovered/Resolved]
  - Cough [Unknown]
  - Chills [Unknown]
  - Haemodynamic instability [Recovered/Resolved]
  - Unevaluable event [Unknown]
  - Generalised oedema [Unknown]
  - Metabolic acidosis [Unknown]
  - Monocytosis [Unknown]
  - Back pain [Unknown]
  - Diarrhoea [Unknown]
  - Myeloid leukaemia [Unknown]
  - Polyuria [Unknown]
  - Leukocytosis [Unknown]
  - Dyspnoea at rest [Unknown]

NARRATIVE: CASE EVENT DATE: 20220901
